FAERS Safety Report 19974338 (Version 3)
Quarter: 2021Q4

REPORT INFORMATION
  Report Type: Spontaneous
  Country: US (occurrence: US)
  Receive Date: 20211020
  Receipt Date: 20211111
  Transmission Date: 20220304
  Serious: No
  Sender: FDA-Public Use
  Company Number: US-PFIZER INC-2021375812

PATIENT
  Age: 49 Year
  Sex: Female

DRUGS (1)
  1. PRISTIQ EXTENDED-RELEASE [Suspect]
     Active Substance: DESVENLAFAXINE SUCCINATE
     Dosage: 50 MG, DAILY (1 TABLET DAILY)
     Route: 048

REACTIONS (2)
  - Road traffic accident [Unknown]
  - Multiple injuries [Unknown]

NARRATIVE: CASE EVENT DATE: 20210317
